FAERS Safety Report 6297269-8 (Version None)
Quarter: 2009Q3

REPORT INFORMATION
  Report Type: 
  Country: None (occurrence: None)
  Receive Date: 20090804
  Receipt Date: 20090804
  Transmission Date: 20100115
  Serious: Yes (Life-Threatening)
  Sender: FDA-Public Use
  Company Number: None

PATIENT
  Sex: Female

DRUGS (6)
  1. FLOVENT HFA [Suspect]
     Indication: ASTHMA
     Dosage: 2 PFS BID INHALED
  2. FLOVENT HFA [Suspect]
     Indication: MULTIPLE ALLERGIES
     Dosage: 2 PFS BID INHALED
  3. LEVOTHYROXINE SODIUM [Concomitant]
  4. LISINOPRIL [Concomitant]
  5. HYDROCHLOROTHIAZIDE [Concomitant]
  6. POTASSIUM CHLORIDE [Concomitant]

REACTIONS (6)
  - ADRENAL DISORDER [None]
  - ENDOCRINE DISORDER [None]
  - FLUID RETENTION [None]
  - INCREASED TENDENCY TO BRUISE [None]
  - MALAISE [None]
  - WEIGHT INCREASED [None]
